FAERS Safety Report 5508966-3 (Version None)
Quarter: 2007Q4

REPORT INFORMATION
  Report Type: 
  Country: None (occurrence: None)
  Receive Date: 20071031
  Receipt Date: 20070814
  Transmission Date: 20080405
  Serious: No
  Sender: FDA-Public Use
  Company Number: 2007PV033293

PATIENT
  Sex: Female

DRUGS (11)
  1. SYMLIN [Suspect]
     Indication: DIABETES MELLITUS
     Dosage: 120 MCG;TID;SC
     Route: 058
     Dates: start: 20070101
  2. PREDNISONE [Suspect]
  3. RANITIDINE HCL [Suspect]
  4. NEXIUM [Suspect]
  5. PREDNISONE [Concomitant]
  6. NEBULIZER TREATMENT, NOT SPECIFIED [Concomitant]
  7. ANTIBIOTICS [Concomitant]
  8. LANTUS [Concomitant]
  9. GLUCOVANCE [Concomitant]
  10. AVANDIA [Concomitant]
  11. MAALOX [Concomitant]

REACTIONS (15)
  - ABDOMINAL DISTENSION [None]
  - ABDOMINAL PAIN UPPER [None]
  - ASTHMA [None]
  - BLOOD GLUCOSE INCREASED [None]
  - DECREASED APPETITE [None]
  - DEPRESSED MOOD [None]
  - DIARRHOEA [None]
  - EARLY SATIETY [None]
  - INCREASED APPETITE [None]
  - INJECTION SITE ERYTHEMA [None]
  - NAUSEA [None]
  - PNEUMONIA [None]
  - TREMOR [None]
  - VIOLENCE-RELATED SYMPTOM [None]
  - WEIGHT DECREASED [None]
